FAERS Safety Report 19202256 (Version 1)
Quarter: 2021Q2

REPORT INFORMATION
  Report Type: Spontaneous
  Country: BR (occurrence: BR)
  Receive Date: 20210502
  Receipt Date: 20210502
  Transmission Date: 20210717
  Serious: Yes (Hospitalization, Other)
  Sender: FDA-Public Use
  Company Number: NVSC2021BR086831

PATIENT
  Sex: Male

DRUGS (15)
  1. OMEPRAZOLE. [Concomitant]
     Active Substance: OMEPRAZOLE
     Indication: PRODUCT USED FOR UNKNOWN INDICATION
     Dosage: 20 G
     Route: 065
  2. MONOCORDIL [Concomitant]
     Active Substance: ISOSORBIDE MONONITRATE
     Indication: PRODUCT USED FOR UNKNOWN INDICATION
     Dosage: 20 MG, (BEGINING OF MAR 2020)
     Route: 065
     Dates: start: 202003
  3. JARDIANCE [Concomitant]
     Active Substance: EMPAGLIFLOZIN
     Indication: PRODUCT USED FOR UNKNOWN INDICATION
     Dosage: 0.5 DF, (BEIGNING OF MAR 2021)
     Route: 065
     Dates: start: 202003
  4. DIOVAN [Suspect]
     Active Substance: VALSARTAN
     Indication: PRODUCT USED FOR UNKNOWN INDICATION
     Dosage: 160 MG (BEGINING OF MAR 2020)
     Route: 065
     Dates: start: 202003
  5. ROXFLAN [Concomitant]
     Active Substance: AMLODIPINE BESYLATE
     Indication: PRODUCT USED FOR UNKNOWN INDICATION
     Dosage: 5 MG, (BEGINING OF MAR 2020)
     Route: 065
     Dates: start: 202003
  6. SELOZOK [Concomitant]
     Active Substance: METOPROLOL SUCCINATE
     Indication: PRODUCT USED FOR UNKNOWN INDICATION
     Dosage: 25 MG, STARTED ON BEGINING OF MAR 2020
     Route: 065
     Dates: start: 202003
  7. HYDROCHLOROTHIAZIDE. [Concomitant]
     Active Substance: HYDROCHLOROTHIAZIDE
     Indication: PRODUCT USED FOR UNKNOWN INDICATION
     Dosage: 25 MG, (BEGNING OF MAR 2020)
     Route: 065
     Dates: start: 202003
  8. HUMALIN [Concomitant]
     Active Substance: INSULIN NOS
     Indication: PRODUCT USED FOR UNKNOWN INDICATION
     Dosage: 100 UI/ML
     Route: 065
  9. OMEPRAZOLE. [Concomitant]
     Active Substance: OMEPRAZOLE
     Dosage: 40 MG
     Route: 065
  10. PRADAXA [Concomitant]
     Active Substance: DABIGATRAN ETEXILATE MESYLATE
     Indication: PRODUCT USED FOR UNKNOWN INDICATION
     Dosage: 110 MG, (BEGINING OF MAR 2020)
     Route: 065
     Dates: start: 202003
  11. ASPIRINA PREVENT [Concomitant]
     Active Substance: ASPIRIN
     Indication: PRODUCT USED FOR UNKNOWN INDICATION
     Dosage: 100 MG
     Route: 065
  12. PURAN [Concomitant]
     Active Substance: LEVOTHYROXINE SODIUM
     Indication: PRODUCT USED FOR UNKNOWN INDICATION
     Dosage: 75 MG
     Route: 065
  13. SIMVASTATIN. [Suspect]
     Active Substance: SIMVASTATIN
     Indication: PRODUCT USED FOR UNKNOWN INDICATION
     Dosage: 20 MG,(BEGINING OF MAR 2020)
     Route: 065
     Dates: start: 202003
  14. VASTAREL [Concomitant]
     Active Substance: TRIMETAZIDINE DIHYDROCHLORIDE
     Indication: PRODUCT USED FOR UNKNOWN INDICATION
     Dosage: 35 MG, (BEGINING OF MAR 2020)
     Route: 065
     Dates: start: 202003
  15. DUOMO [Concomitant]
     Active Substance: DOXAZOSIN MESYLATE
     Indication: PRODUCT USED FOR UNKNOWN INDICATION
     Dosage: 2 MG
     Route: 065

REACTIONS (8)
  - Paraesthesia [Unknown]
  - Nausea [Unknown]
  - Seminal vesiculitis [Unknown]
  - Urinary tract infection [Not Recovered/Not Resolved]
  - Pain [Unknown]
  - Paralysis [Unknown]
  - Cerebrovascular accident [Recovered/Resolved with Sequelae]
  - Fall [Recovered/Resolved]
